FAERS Safety Report 4721660-1 (Version None)
Quarter: 2005Q3

REPORT INFORMATION
  Report Type: 
  Country: None (occurrence: None)
  Receive Date: 20050721
  Receipt Date: 20050209
  Transmission Date: 20060218
  Serious: No
  Sender: FDA-Public Use
  Company Number: US-BRISTOL-MYERS SQUIBB COMPANY-12855904

PATIENT
  Age: 71 Year
  Sex: Male
  Weight: 75 kg

DRUGS (6)
  1. COUMADIN [Suspect]
     Dosage: 2.5 MG FOR 4 DAYS + 3.75 FOR 3 DAYS
  2. ALTACE [Concomitant]
  3. CHONDROITIN [Concomitant]
  4. FLOMAX [Concomitant]
  5. GLUCOSAMINE [Concomitant]
  6. SAW PALMETTO [Concomitant]

REACTIONS (1)
  - INTERNATIONAL NORMALISED RATIO DECREASED [None]
